FAERS Safety Report 6653145-X (Version None)
Quarter: 2010Q1

REPORT INFORMATION
  Report Type: 
  Country: None (occurrence: None)
  Receive Date: 20100326
  Receipt Date: 20100323
  Transmission Date: 20100710
  Serious: Yes (Hospitalization)
  Sender: FDA-Public Use
  Company Number: US-BAYER-201014600NA

PATIENT
  Age: 77 Year
  Sex: Male
  Weight: 110 kg

DRUGS (13)
  1. LEUKINE [Suspect]
     Indication: MALIGNANT MELANOMA
     Dosage: TOTAL DAILY DOSE: 125 ?G/M2
     Route: 058
     Dates: start: 20091130
  2. LEUKINE [Suspect]
     Dosage: TOTAL DAILY DOSE: 125 ?G/M2
     Route: 058
     Dates: start: 20091228, end: 20100110
  3. LEUKINE [Suspect]
     Dosage: TOTAL DAILY DOSE: 125 ?G/M2
     Route: 058
     Dates: start: 20100208
  4. LISINOPRIL [Concomitant]
     Dates: start: 19990101
  5. FLOMAX [Concomitant]
     Dates: start: 20070101
  6. ASPIRIN [Concomitant]
     Dates: start: 19990101
  7. XANAX [Concomitant]
     Dates: start: 20070101
  8. CENTRUM SILVER [Concomitant]
  9. SLOW-FE [Concomitant]
  10. VITAMIN C [Concomitant]
  11. PRILOSEC [Concomitant]
  12. COUMADIN [Concomitant]
  13. NEXIUM [Concomitant]

REACTIONS (1)
  - PULMONARY EMBOLISM [None]
